FAERS Safety Report 10192031 (Version 1)
Quarter: 2014Q2

REPORT INFORMATION
  Report Type: Spontaneous
  Country: DE (occurrence: DE)
  Receive Date: 20140523
  Receipt Date: 20140523
  Transmission Date: 20141212
  Serious: Yes (Other)
  Sender: FDA-Public Use
  Company Number: DE-PFIZER INC-2014136879

PATIENT
  Sex: Female

DRUGS (2)
  1. AZULFIDINE RA [Suspect]
  2. NITROXOLINE FORTE [Concomitant]

REACTIONS (1)
  - Dysphagia [Unknown]
